FAERS Safety Report 22139020 (Version 2)
Quarter: 2023Q2

REPORT INFORMATION
  Report Type: Spontaneous
  Country: US (occurrence: US)
  Receive Date: 20230327
  Receipt Date: 20230607
  Transmission Date: 20230721
  Serious: Yes (Disabling)
  Sender: FDA-Public Use
  Company Number: US-CELLTRION INC.-2023US006101

PATIENT

DRUGS (2)
  1. INFLECTRA [Suspect]
     Active Substance: INFLIXIMAB-DYYB
     Indication: Colitis
     Dosage: UNK
  2. INFLIXIMAB [Suspect]
     Active Substance: INFLIXIMAB
     Indication: Colitis
     Dosage: 10 ML, EVERY 8 WEEKS

REACTIONS (9)
  - Gait inability [Unknown]
  - Arthralgia [Unknown]
  - Arthralgia [Unknown]
  - Grip strength decreased [Unknown]
  - Oropharyngeal pain [Unknown]
  - Headache [Unknown]
  - Product substitution issue [Unknown]
  - Insurance issue [Unknown]
  - Intentional product use issue [Unknown]
